FAERS Safety Report 26055666 (Version 1)
Quarter: 2025Q4

REPORT INFORMATION
  Report Type: Report from Study
  Country: US (occurrence: US)
  Receive Date: 20251117
  Receipt Date: 20251117
  Transmission Date: 20260118
  Serious: Yes (Hospitalization)
  Sender: ALEXION PHARMACEUTICALS
  Company Number: US-AstraZeneca-CH-00993925A

PATIENT
  Age: 23 Year
  Sex: Female

DRUGS (5)
  1. BENRALIZUMAB [Suspect]
     Active Substance: BENRALIZUMAB
     Indication: Asthma
     Dosage: 30 MILLIGRAM, Q8W
     Dates: start: 20240417
  2. BENRALIZUMAB [Suspect]
     Active Substance: BENRALIZUMAB
  3. ALFALFA [Concomitant]
     Active Substance: ALFALFA
     Route: 065
  4. IBUPROFEN [Concomitant]
     Active Substance: IBUPROFEN
     Route: 065
  5. BENZONATATE [Concomitant]
     Active Substance: BENZONATATE
     Route: 065

REACTIONS (4)
  - Asthma [Unknown]
  - Infection [Unknown]
  - Inappropriate schedule of product administration [Unknown]
  - Quality of life decreased [Unknown]
